FAERS Safety Report 10184047 (Version 1)
Quarter: 2014Q2

REPORT INFORMATION
  Report Type: Spontaneous
  Country: GB (occurrence: GB)
  Receive Date: 20140520
  Receipt Date: 20140520
  Transmission Date: 20141212
  Serious: Yes (Other)
  Sender: FDA-Public Use
  Company Number: GB-GLAXOSMITHKLINE-B0994857A

PATIENT
  Age: 23 Year
  Sex: Male
  Weight: 70 kg

DRUGS (3)
  1. IMIGRAN RECOVERY [Suspect]
     Indication: MIGRAINE
     Route: 048
     Dates: start: 20140215, end: 20140430
  2. IBUPROFEN [Concomitant]
  3. PARACETAMOL [Concomitant]

REACTIONS (3)
  - Disorientation [Not Recovered/Not Resolved]
  - Dizziness [Not Recovered/Not Resolved]
  - Fatigue [Not Recovered/Not Resolved]
